FAERS Safety Report 4439512-3 (Version None)
Quarter: 2004Q3

REPORT INFORMATION
  Report Type: 
  Country: None (occurrence: None)
  Receive Date: 20040901
  Receipt Date: 20040901
  Transmission Date: 20050211
  Serious: Yes (Hospitalization)
  Sender: FDA-Public Use
  Company Number: None

PATIENT
  Sex: Female

DRUGS (1)
  1. COMPAZINE [Suspect]
     Indication: NAUSEA
     Dosage: [2 DAYS PRIOR TO ADMISSION]

REACTIONS (3)
  - DYSKINESIA [None]
  - SENSATION OF HEAVINESS [None]
  - TONGUE DISORDER [None]
